FAERS Safety Report 5867798-7 (Version None)
Quarter: 2008Q3

REPORT INFORMATION
  Report Type: 
  Country: None (occurrence: None)
  Receive Date: 20080902
  Receipt Date: 20080821
  Transmission Date: 20090109
  Serious: Yes (Hospitalization, Other)
  Sender: FDA-Public Use
  Company Number: US-PFIZER INC-2008033570

PATIENT
  Sex: Female
  Weight: 88.5 kg

DRUGS (14)
  1. GEODON [Suspect]
     Indication: SLEEP DISORDER
     Route: 048
  2. CHANTIX [Suspect]
     Indication: EX-TOBACCO USER
  3. LITHIUM CARBONATE [Suspect]
  4. NAPROXEN [Suspect]
  5. ATIVAN [Concomitant]
  6. RESTORIL [Concomitant]
  7. DEMEROL [Concomitant]
  8. IBUPROFEN TABLETS [Concomitant]
  9. FIORICET [Concomitant]
  10. KEFLEX [Concomitant]
  11. ZETIA [Concomitant]
  12. FLEXERIL [Concomitant]
  13. PROMETHAZINE [Concomitant]
  14. KLONOPIN [Concomitant]

REACTIONS (6)
  - BIPOLAR DISORDER [None]
  - BLOOD CHOLESTEROL INCREASED [None]
  - FOOT FRACTURE [None]
  - HOMICIDAL IDEATION [None]
  - HYPERSENSITIVITY [None]
  - SEDATION [None]
